FAERS Safety Report 8716239 (Version 3)
Quarter: 2013Q3

REPORT INFORMATION
  Report Type: Spontaneous
  Country: FR (occurrence: FR)
  Receive Date: 20120810
  Receipt Date: 20130925
  Transmission Date: 20140515
  Serious: Yes (Death, Hospitalization)
  Sender: FDA-Public Use
  Company Number: FR-009507513-1207FRA011143

PATIENT
  Age: 81 Year
  Sex: Male
  Weight: 80 kg

DRUGS (2)
  1. NOROXINE [Suspect]
     Indication: URINARY TRACT INFECTION
     Dosage: 2 DF, QD
     Route: 048
     Dates: start: 201206, end: 201207
  2. ZESTORETIC [Concomitant]
     Indication: HYPERTENSION

REACTIONS (2)
  - Pemphigoid [Fatal]
  - Arthralgia [Fatal]
